FAERS Safety Report 8484568-4 (Version None)
Quarter: 2012Q3

REPORT INFORMATION
  Report Type: 
  Country: None (occurrence: None)
  Receive Date: 20120703
  Receipt Date: 20120621
  Transmission Date: 20120928
  Serious: Yes (Hospitalization)
  Sender: FDA-Public Use
  Company Number: US-MYLANLABS-2010AC000004

PATIENT
  Age: 57 Year
  Sex: Female
  Weight: 90.27 kg

DRUGS (10)
  1. FUROSEMIDE [Concomitant]
  2. TRAMADOL HCL [Concomitant]
  3. SPIRONOLACTONE [Concomitant]
  4. ALBUTEROL [Concomitant]
  5. FOSINOPRIL SODIUM [Concomitant]
  6. NEXIUM [Concomitant]
  7. SPIRIVA [Concomitant]
  8. DIGOXIN [Suspect]
     Route: 048
     Dates: start: 20080323, end: 20090323
  9. BACTRIM [Concomitant]
  10. LORTAB [Concomitant]

REACTIONS (10)
  - PHARYNGEAL LEUKOPLAKIA [None]
  - COUGH [None]
  - DYSPHAGIA [None]
  - DYSPHONIA [None]
  - HIATUS HERNIA [None]
  - X-RAY ABNORMAL [None]
  - LARYNGOSCOPY ABNORMAL [None]
  - INTERVERTEBRAL DISC SPACE NARROWING [None]
  - OESOPHAGOSCOPY ABNORMAL [None]
  - GASTROOESOPHAGEAL REFLUX DISEASE [None]
